FAERS Safety Report 17322141 (Version 1)
Quarter: 2020Q1

REPORT INFORMATION
  Report Type: Other
  Country: US (occurrence: US)
  Receive Date: 20200127
  Receipt Date: 20200127
  Transmission Date: 20200409
  Serious: No
  Sender: FDA-Public Use
  Company Number: US-ACORDA-ACO_159338_2019

PATIENT
  Sex: Female

DRUGS (1)
  1. AMPYRA [Suspect]
     Active Substance: DALFAMPRIDINE
     Indication: PRODUCT USED FOR UNKNOWN INDICATION
     Dosage: 10 MILLIGRAM, Q 12 HRS
     Route: 048
     Dates: start: 20190520

REACTIONS (8)
  - Gait disturbance [Unknown]
  - Mobility decreased [Unknown]
  - Multiple sclerosis [Unknown]
  - Paraesthesia [Unknown]
  - Tremor [Unknown]
  - Hypotension [Unknown]
  - Hypoaesthesia [Unknown]
  - Pain [Unknown]
